FAERS Safety Report 5007549-1 (Version None)
Quarter: 2006Q2

REPORT INFORMATION
  Report Type: 
  Country: None (occurrence: None)
  Receive Date: 20060517
  Receipt Date: 20060502
  Transmission Date: 20061013
  Serious: Yes (Hospitalization)
  Sender: FDA-Public Use
  Company Number: 8016817

PATIENT

DRUGS (2)
  1. KEPPRA [Suspect]
     Indication: CONVULSION
     Dosage: PO
     Route: 048
     Dates: start: 20051101, end: 20060501
  2. KEPPRA [Suspect]
     Indication: CONVULSION
     Dosage: PO
     Route: 048
     Dates: start: 20060501

REACTIONS (1)
  - BRADYCARDIA [None]
